FAERS Safety Report 17403863 (Version 2)
Quarter: 2021Q1

REPORT INFORMATION
  Report Type: Spontaneous
  Country: US (occurrence: US)
  Receive Date: 20200211
  Receipt Date: 20210211
  Transmission Date: 20210419
  Serious: No
  Sender: FDA-Public Use
  Company Number: US-PERRIGO-19US015707

PATIENT
  Age: 66 Year
  Sex: Male
  Weight: 68.03 kg

DRUGS (4)
  1. CETIRIZINE HYDROCHLORIDE. [Suspect]
     Active Substance: CETIRIZINE HYDROCHLORIDE
     Indication: RHINORRHOEA
     Dosage: 10 MG, SINGLE
     Route: 048
     Dates: start: 20200324, end: 20200324
  2. AMLODIPINE [Concomitant]
     Active Substance: AMLODIPINE BESYLATE
     Indication: HYPERTENSION
     Dosage: UNKNOWN, UNKNOWN
     Route: 048
     Dates: start: 201903
  3. CETIRIZINE HYDROCHLORIDE. [Suspect]
     Active Substance: CETIRIZINE HYDROCHLORIDE
     Indication: COUGH
     Dosage: 10 MG, QD
     Route: 048
     Dates: start: 201912
  4. DONEPEZIL. [Concomitant]
     Active Substance: DONEPEZIL
     Indication: MEMORY IMPAIRMENT
     Dosage: UNKNOWN, UNKNOWN
     Route: 048
     Dates: start: 201903

REACTIONS (3)
  - Therapeutic product effect incomplete [Unknown]
  - Off label use [Unknown]
  - Product administered to patient of inappropriate age [Unknown]

NARRATIVE: CASE EVENT DATE: 201912
